FAERS Safety Report 12404531 (Version 3)
Quarter: 2016Q3

REPORT INFORMATION
  Report Type: Report from Study
  Country: AR (occurrence: AR)
  Receive Date: 20160525
  Receipt Date: 20160725
  Transmission Date: 20161109
  Serious: Yes (Death, Hospitalization, Other)
  Sender: FDA-Public Use
  Company Number: PHHY2016AR039050

PATIENT
  Age: 61 Year
  Sex: Male

DRUGS (3)
  1. NAPROXEN. [Concomitant]
     Active Substance: NAPROXEN
     Indication: PYREXIA
     Dosage: 500 MG, UNK
     Route: 065
  2. GENTAMICIN. [Concomitant]
     Active Substance: GENTAMICIN
     Indication: PRODUCT USED FOR UNKNOWN INDICATION
     Dosage: 750 MG, UNK
     Route: 065
  3. AFINITOR [Suspect]
     Active Substance: EVEROLIMUS
     Indication: RENAL CANCER METASTATIC
     Dosage: 10 MG, QD
     Route: 065
     Dates: start: 20150401

REACTIONS (10)
  - Pulmonary oedema [Not Recovered/Not Resolved]
  - Hyperventilation [Unknown]
  - Pneumonia [Not Recovered/Not Resolved]
  - Dyspnoea [Unknown]
  - Malignant neoplasm progression [Fatal]
  - Malaise [Unknown]
  - Anaemia [Recovering/Resolving]
  - Palpitations [Unknown]
  - Fatigue [Unknown]
  - Sneezing [Unknown]

NARRATIVE: CASE EVENT DATE: 201512
